FAERS Safety Report 17834395 (Version 2)
Quarter: 2020Q2

REPORT INFORMATION
  Report Type: Spontaneous
  Country: US (occurrence: US)
  Receive Date: 20200528
  Receipt Date: 20200602
  Transmission Date: 20200714
  Serious: Yes (Other)
  Sender: FDA-Public Use
  Company Number: US-GLAXOSMITHKLINE-US2020087436

PATIENT
  Age: 85 Year
  Sex: Female

DRUGS (1)
  1. TRELEGY ELLIPTA [Suspect]
     Active Substance: FLUTICASONE FUROATE\UMECLIDINIUM BROMIDE\VILANTEROL TRIFENATATE
     Indication: DYSPNOEA
     Dosage: 1 DF, 1D (100/62.5/25 MCG)
     Route: 065
     Dates: start: 201909

REACTIONS (9)
  - Vision blurred [Unknown]
  - Product dose omission [Unknown]
  - Productive cough [Unknown]
  - Oropharyngeal pain [Unknown]
  - Oropharyngeal blistering [Recovering/Resolving]
  - Musculoskeletal pain [Unknown]
  - Wrong technique in device usage process [Unknown]
  - Product use issue [Unknown]
  - Rhinorrhoea [Unknown]

NARRATIVE: CASE EVENT DATE: 201909
